FAERS Safety Report 4351768-4 (Version None)
Quarter: 2004Q2

REPORT INFORMATION
  Report Type: 
  Country: None (occurrence: None)
  Receive Date: 20040503
  Receipt Date: 20040419
  Transmission Date: 20050107
  Serious: Yes (Hospitalization)
  Sender: FDA-Public Use
  Company Number: FR-GLAXOSMITHKLINE-B0330417A

PATIENT
  Age: 78 Year
  Sex: Female

DRUGS (5)
  1. DEROXAT [Suspect]
     Indication: DEPRESSION
     Dosage: 20MG PER DAY
     Route: 048
     Dates: end: 20030723
  2. ALLOCHRYSINE [Suspect]
     Dosage: 1UNIT MONTHLY
     Route: 030
     Dates: end: 20030723
  3. MEPRONIZINE [Suspect]
     Route: 048
     Dates: end: 20030723
  4. LEXOMIL [Suspect]
     Dosage: 6MG PER DAY
     Route: 048
     Dates: end: 20030723
  5. VASTAREL [Suspect]
     Dosage: 20MG THREE TIMES PER DAY
     Route: 048
     Dates: end: 20030723

REACTIONS (16)
  - ABNORMAL BEHAVIOUR [None]
  - AGITATION [None]
  - ATAXIA [None]
  - CEREBRAL ATROPHY [None]
  - COMMUNICATION DISORDER [None]
  - DEMENTIA [None]
  - DIFFICULTY IN WALKING [None]
  - ENCEPHALOPATHY [None]
  - EUPHORIC MOOD [None]
  - FALL [None]
  - HEAD INJURY [None]
  - INCOHERENT [None]
  - LOGORRHOEA [None]
  - MEMORY IMPAIRMENT [None]
  - MENTAL DISORDER [None]
  - WRIST FRACTURE [None]
